FAERS Safety Report 14229777 (Version 1)
Quarter: 2017Q4

REPORT INFORMATION
  Report Type: Spontaneous
  Country: US (occurrence: US)
  Receive Date: 20171128
  Receipt Date: 20171128
  Transmission Date: 20180321
  Serious: Yes (Congenital Anomaly)
  Sender: FDA-Public Use
  Company Number: US-ANTARES PHARMA, INC.-2016-LIT-ME-0350

PATIENT
  Age: 40 Week
  Sex: Male
  Weight: 3.22 kg

DRUGS (1)
  1. METHOTREXATE. [Suspect]
     Active Substance: METHOTREXATE
     Indication: ABORTION INDUCED

REACTIONS (11)
  - Foetal exposure during pregnancy [Unknown]
  - Craniosynostosis [Recovered/Resolved]
  - Eye disorder [Recovered/Resolved]
  - Cleft palate [Unknown]
  - Nose deformity [Recovered/Resolved]
  - Talipes [Recovered/Resolved]
  - Fontanelle depressed [Recovered/Resolved]
  - Limb deformity [Recovered/Resolved]
  - Clinodactyly [Recovered/Resolved]
  - Skull fracture [Recovered/Resolved]
  - Arthropathy [Recovered/Resolved]
